FAERS Safety Report 15768164 (Version 1)
Quarter: 2018Q4

REPORT INFORMATION
  Report Type: Spontaneous
  Country: JP (occurrence: JP)
  Receive Date: 20181227
  Receipt Date: 20181227
  Transmission Date: 20190205
  Serious: Yes (Other)
  Sender: FDA-Public Use
  Company Number: JP-PFIZER INC-2018527913

PATIENT

DRUGS (2)
  1. CRAVIT [Suspect]
     Active Substance: LEVOFLOXACIN
     Route: 048
  2. RHEUMATREX [Suspect]
     Active Substance: METHOTREXATE SODIUM
     Indication: RHEUMATOID ARTHRITIS
     Route: 048

REACTIONS (2)
  - Anaphylactoid reaction [Unknown]
  - Eczema [Unknown]
